FAERS Safety Report 8780687 (Version 11)
Quarter: 2014Q2

REPORT INFORMATION
  Report Type: Report from Study
  Country: JP (occurrence: JP)
  Receive Date: 20120913
  Receipt Date: 20140423
  Transmission Date: 20141212
  Serious: Yes (Death, Life-Threatening, Disabling, Other)
  Sender: FDA-Public Use
  Company Number: JP-VERTEX PHARMACEUTICAL INC.-2012-020881

PATIENT
  Age: 61 Year
  Sex: Female

DRUGS (13)
  1. VX-950 (TELAPREVIR) [Suspect]
     Indication: CHRONIC HEPATITIS C
     Dosage: 2250 MG, QD
     Route: 048
     Dates: start: 20120628, end: 20120703
  2. VX-950 (TELAPREVIR) [Suspect]
     Dosage: 1500 MG, QD
     Route: 048
     Dates: start: 20120704, end: 20120830
  3. REBETOL [Suspect]
     Indication: CHRONIC HEPATITIS C
     Dosage: 800 MG, QD
     Route: 048
     Dates: start: 20120628, end: 20120830
  4. PEGINTRON [Suspect]
     Indication: CHRONIC HEPATITIS C
     Dosage: 1.5 ?G/KG, QW
     Route: 058
     Dates: start: 20120628, end: 20120830
  5. GASMOTIN [Concomitant]
     Dosage: 15 MG, QD
     Route: 048
  6. GASMOTIN [Concomitant]
     Dosage: 15 MG, QD
     Route: 048
     Dates: start: 20120710, end: 20120831
  7. PROMAC [Concomitant]
     Dosage: 150 MG, QD
     Route: 048
  8. PROMAC [Concomitant]
     Dosage: 150 MG, UNK
     Route: 048
     Dates: start: 20120710, end: 20120831
  9. BISULASE STRONG [Concomitant]
     Dosage: 30 MG, QD
     Route: 048
  10. BISULASE STRONG [Concomitant]
     Dosage: 30 MG, QD
     Route: 048
     Dates: start: 20120710, end: 20120831
  11. ALINAMIN-F [Concomitant]
     Dosage: 75 MG, QD
     Route: 048
     Dates: start: 20120821, end: 20120902
  12. PREDNISOLONE [Concomitant]
     Dosage: 10 MG, QD
     Route: 048
     Dates: start: 20120901, end: 20120902
  13. THYRADIN [Concomitant]
     Dosage: 25 ?G, QD
     Route: 048
     Dates: start: 20100401, end: 20120903

REACTIONS (6)
  - Pyelonephritis [Not Recovered/Not Resolved]
  - Gastrointestinal haemorrhage [Fatal]
  - Disseminated intravascular coagulation [Fatal]
  - Dehydration [Not Recovered/Not Resolved]
  - Renal impairment [Not Recovered/Not Resolved]
  - Platelet count decreased [Not Recovered/Not Resolved]
